FAERS Safety Report 15775884 (Version 1)
Quarter: 2018Q4

REPORT INFORMATION
  Report Type: Spontaneous
  Country: JP (occurrence: JP)
  Receive Date: 20181231
  Receipt Date: 20181231
  Transmission Date: 20190205
  Serious: Yes (Hospitalization)
  Sender: FDA-Public Use
  Company Number: JP-TEVA-2018-JP-993399

PATIENT
  Age: 77 Year
  Sex: Male

DRUGS (10)
  1. ESOMEPRAZOLE. [Suspect]
     Active Substance: ESOMEPRAZOLE MAGNESIUM
     Route: 065
  2. FEBUXOSTAT. [Suspect]
     Active Substance: FEBUXOSTAT
     Route: 065
  3. BICALUTAMIDE. [Suspect]
     Active Substance: BICALUTAMIDE
     Indication: PRODUCT USED FOR UNKNOWN INDICATION
     Route: 065
  4. CEFAZOLIN [Suspect]
     Active Substance: CEFAZOLIN
     Indication: ENDOCARDITIS
     Route: 065
  5. DROXIDOPA [Suspect]
     Active Substance: DROXIDOPA
     Route: 065
  6. LIPOSOMAL AMPHOTERICIN-B [Suspect]
     Active Substance: AMPHOTERICIN B
     Indication: EYE INFECTION FUNGAL
     Route: 065
  7. MEROPENEM. [Concomitant]
     Active Substance: MEROPENEM
     Indication: EYE INFECTION FUNGAL
     Route: 065
  8. VORICONAZOLE. [Concomitant]
     Active Substance: VORICONAZOLE
     Indication: EYE INFECTION FUNGAL
     Route: 065
  9. PIMARICIN [Concomitant]
     Active Substance: NATAMYCIN
     Indication: EYE INFECTION FUNGAL
     Route: 065
  10. LEVOFLOXACIN. [Concomitant]
     Active Substance: LEVOFLOXACIN
     Indication: EYE INFECTION FUNGAL
     Route: 065

REACTIONS (6)
  - Conjunctival ulcer [Recovering/Resolving]
  - Uveitis [Recovering/Resolving]
  - Eye abscess [Recovering/Resolving]
  - Eye infection fungal [Recovering/Resolving]
  - Pancytopenia [Unknown]
  - Drug ineffective [Unknown]
